FAERS Safety Report 4907788-1 (Version None)
Quarter: 2006Q1

REPORT INFORMATION
  Report Type: 
  Country: None (occurrence: None)
  Receive Date: 20060210
  Receipt Date: 20060201
  Transmission Date: 20060701
  Serious: Yes (Hospitalization)
  Sender: FDA-Public Use
  Company Number: US-BRISTOL-MYERS SQUIBB COMPANY-13267869

PATIENT
  Age: 70 Year
  Sex: Male

DRUGS (2)
  1. VINFLUNINE [Suspect]
     Indication: DRUG LEVEL
     Route: 042
     Dates: start: 20060125, end: 20060125
  2. KETOCONAZOLE [Suspect]
     Indication: DRUG LEVEL
     Route: 048
     Dates: start: 20060103, end: 20060109

REACTIONS (2)
  - ILEUS [None]
  - MENTAL IMPAIRMENT [None]
